FAERS Safety Report 5009882-6 (Version None)
Quarter: 2006Q2

REPORT INFORMATION
  Report Type: 
  Country: None (occurrence: None)
  Receive Date: 20060524
  Receipt Date: 20060511
  Transmission Date: 20061013
  Serious: Yes (Other)
  Sender: FDA-Public Use
  Company Number: GB-NOVOPROD-253159

PATIENT
  Age: 71 Year
  Sex: Female
  Weight: 78 kg

DRUGS (9)
  1. NOVONORM [Suspect]
     Indication: INSULIN-REQUIRING TYPE II DIABETES MELLITUS
     Dosage: .5 MG, BID
     Route: 048
     Dates: start: 20040207, end: 20040217
  2. NOVONORM [Suspect]
     Dosage: 1 MG, TID
     Dates: start: 20060321, end: 20060425
  3. IRBESARTAN [Concomitant]
     Dosage: 150 MG, QD
     Route: 048
     Dates: start: 20051124, end: 20060201
  4. GLUCOFORMIN [Concomitant]
     Dosage: 500 MG, TID
     Route: 048
     Dates: start: 20031003
  5. ASPIRIN [Concomitant]
     Dosage: 75 MG, QD
     Route: 048
     Dates: start: 20030805
  6. FRUSEMIDE                          /00032601/ [Concomitant]
     Dosage: 40 MG, QD
     Route: 048
     Dates: start: 20040719
  7. LEVOTHYROXINE SODIUM [Concomitant]
     Dosage: 100 UG, QD
     Route: 048
     Dates: start: 20040719
  8. PARACETAMOL [Concomitant]
     Dosage: 1000 MG, QD
     Route: 048
  9. MOMETASONE [Concomitant]
     Dosage: 2 UNK, QD
     Route: 045

REACTIONS (1)
  - POLYCYTHAEMIA VERA [None]
